FAERS Safety Report 8095541-2 (Version None)
Quarter: 2012Q1

REPORT INFORMATION
  Report Type: 
  Country: None (occurrence: None)
  Receive Date: 20120129
  Receipt Date: 20111228
  Transmission Date: 20120608
  Serious: No
  Sender: FDA-Public Use
  Company Number: US-ABBOTT-11P-163-0887781-00

PATIENT
  Age: 25 Year
  Sex: Male

DRUGS (6)
  1. PENTASA [Concomitant]
     Indication: CROHN'S DISEASE
     Dosage: DAILY
  2. LOMOTIL [Concomitant]
     Indication: DIARRHOEA
     Dosage: DAILY
  3. ULTRAM [Concomitant]
     Indication: PAIN
     Dosage: DAILY
  4. ZOLOFT [Concomitant]
     Indication: DEPRESSION
  5. HUMIRA [Suspect]
     Indication: CROHN'S DISEASE
     Dates: start: 20111116
  6. PHENERGAN [Concomitant]
     Indication: PRODUCT USED FOR UNKNOWN INDICATION
     Dosage: DAILY

REACTIONS (1)
  - BLOOD URINE PRESENT [None]
